FAERS Safety Report 13031880 (Version 1)
Quarter: 2016Q4

REPORT INFORMATION
  Report Type: Spontaneous
  Country: US (occurrence: US)
  Receive Date: 20161215
  Receipt Date: 20161215
  Transmission Date: 20170207
  Serious: No
  Sender: FDA-Public Use
  Company Number: US-PFIZER INC-2016571017

PATIENT
  Age: 51 Year
  Sex: Female

DRUGS (4)
  1. SEPTRA [Suspect]
     Active Substance: SULFAMETHOXAZOLE\TRIMETHOPRIM
     Dosage: UNK
  2. MELOXICAM. [Suspect]
     Active Substance: MELOXICAM
     Dosage: UNK
  3. TYPHOID VACCINE [Suspect]
     Active Substance: TYPHOID VACCINE
     Indication: IMMUNISATION
     Dosage: UNK
  4. INDOCIN [Suspect]
     Active Substance: INDOMETHACIN
     Dosage: UNK

REACTIONS (1)
  - Drug hypersensitivity [Not Recovered/Not Resolved]
